FAERS Safety Report 15476662 (Version 12)
Quarter: 2024Q2

REPORT INFORMATION
  Report Type: Spontaneous
  Country: FR (occurrence: FR)
  Receive Date: 20181009
  Receipt Date: 20240527
  Transmission Date: 20240716
  Serious: Yes (Life-Threatening, Other)
  Sender: FDA-Public Use
  Company Number: None

PATIENT
  Age: 69 Year
  Sex: Male
  Weight: 66 kg

DRUGS (30)
  1. APIXABAN [Suspect]
     Active Substance: APIXABAN
     Indication: Product used for unknown indication
     Dosage: 1 DOSAGE FORM, TWO TIMES A DAY
     Route: 065
  2. APIXABAN [Suspect]
     Active Substance: APIXABAN
     Dosage: 2 DOSAGE FORM, ONCE A DAY
     Route: 065
  3. AMOXICILLIN [Suspect]
     Active Substance: AMOXICILLIN
     Indication: Infection
     Dosage: 1000 MILLIGRAM, ONCE A DAY, 1000 MILLIGRAM, QD
     Route: 048
     Dates: end: 201806
  4. FOLIC ACID [Suspect]
     Active Substance: FOLIC ACID
     Indication: Product used for unknown indication
     Dosage: UNK
     Route: 065
  5. LACTULOSE [Suspect]
     Active Substance: LACTULOSE
     Indication: Product used for unknown indication
     Dosage: 2 DOSAGE FORM, ONCE A DAY, 2 DF, DAILY
     Route: 065
  6. LANSOPRAZOLE [Suspect]
     Active Substance: LANSOPRAZOLE
     Indication: Product used for unknown indication
     Dosage: 1 DOSAGE FORM, ONCE A DAY, 1 DF, DAILY
     Route: 065
  7. ACETAMINOPHEN [Suspect]
     Active Substance: ACETAMINOPHEN
     Indication: Product used for unknown indication
     Dosage: 3 DOSAGE FORM, ONCE A DAY
     Route: 065
  8. ACETAMINOPHEN [Suspect]
     Active Substance: ACETAMINOPHEN
     Dosage: 1 (UNSPECIFIED UNITS) ONCE A DAY
     Route: 065
  9. ACETAMINOPHEN [Suspect]
     Active Substance: ACETAMINOPHEN
     Dosage: 1 DOSAGE FORM, ONCE A DAY
     Route: 065
  10. PREGABALIN [Suspect]
     Active Substance: PREGABALIN
     Indication: Product used for unknown indication
     Dosage: 2 DOSAGE FORM, ONCE A DAY
     Route: 065
  11. PREGABALIN [Suspect]
     Active Substance: PREGABALIN
     Dosage: 1 (UNSPECIFIED UNITS) ONCE A DAY
     Route: 065
  12. PREGABALIN [Suspect]
     Active Substance: PREGABALIN
     Dosage: 1 DOSAGE FORM, ONCE A DAY
     Route: 065
  13. TRAMADOL [Suspect]
     Active Substance: TRAMADOL\TRAMADOL HYDROCHLORIDE
     Indication: Pain
     Dosage: 400 MILLIGRAM, ONCE A DAY, 400 MG, 1X/DAY
     Route: 048
     Dates: start: 201604, end: 201806
  14. TRAMADOL [Suspect]
     Active Substance: TRAMADOL\TRAMADOL HYDROCHLORIDE
     Dosage: 1 (UNSPECIFIED UNITS) ONCE A DAY
     Route: 048
  15. TRAMADOL [Suspect]
     Active Substance: TRAMADOL\TRAMADOL HYDROCHLORIDE
     Dosage: 200 MILLIGRAM, ONCE A DAY
     Route: 048
     Dates: end: 201806
  16. VALACYCLOVIR [Suspect]
     Active Substance: VALACYCLOVIR HYDROCHLORIDE
     Indication: Infection prophylaxis
     Dosage: 500 MILLIGRAM, ONCE A DAY
     Route: 048
     Dates: end: 201806
  17. ZOPICLONE [Suspect]
     Active Substance: ZOPICLONE
     Indication: Product used for unknown indication
     Dosage: 1 DOSAGE FORM, ONCE A DAY, 1 DF, DAILY
     Route: 065
  18. BACTRIM [Suspect]
     Active Substance: SULFAMETHOXAZOLE\TRIMETHOPRIM
     Indication: Pneumocystis jirovecii pneumonia
     Dosage: 1 DOSAGE FORM, ONCE A DAY, 1 DOSAGE FORM, QD
     Route: 048
     Dates: start: 201806
  19. BACTRIM [Suspect]
     Active Substance: SULFAMETHOXAZOLE\TRIMETHOPRIM
     Dosage: 6 DOSAGE FORM, ONCE A DAY, (2 DF, 3X/DAYC(TID) )
     Route: 065
     Dates: start: 201806
  20. BACTRIM [Suspect]
     Active Substance: SULFAMETHOXAZOLE\TRIMETHOPRIM
     Dosage: UNK
     Route: 065
  21. BACLOFEN [Suspect]
     Active Substance: BACLOFEN
     Indication: Product used for unknown indication
     Dosage: 2 DOSAGE FORM, 3 TIMES A DAY
     Route: 065
  22. BACLOFEN [Suspect]
     Active Substance: BACLOFEN
     Dosage: 1 (UNSPECIFIED UNITS), ONCE A DAY
     Route: 065
  23. BACLOFEN [Suspect]
     Active Substance: BACLOFEN
     Dosage: 1 DOSAGE FORM, ONCE A DAY
     Route: 065
  24. BACLOFEN [Suspect]
     Active Substance: BACLOFEN
     Dosage: 6 DOSAGE FORM, ONCE A DAY, 2 DOSAGE FORM, TID
     Route: 065
  25. LEUCOVORIN CALCIUM [Suspect]
     Active Substance: LEUCOVORIN CALCIUM
     Indication: Product used for unknown indication
     Dosage: UNK
     Route: 065
  26. ELIQUIS [Suspect]
     Active Substance: APIXABAN
     Indication: Product used for unknown indication
     Dosage: 2 DOSAGE FORM, ONCE A DAY, 1 DF, BID
     Route: 065
  27. ELIQUIS [Suspect]
     Active Substance: APIXABAN
     Dosage: 1 (UNSPECIFIED UNITS) ONCE A DAY
     Route: 065
  28. ELIQUIS [Suspect]
     Active Substance: APIXABAN
     Dosage: 1 DOSAGE FORM, ONCE A DAY
     Route: 065
  29. DEXAMETHASONE ACETATE [Suspect]
     Active Substance: DEXAMETHASONE ACETATE
     Indication: Product used for unknown indication
     Dosage: 1 DOSAGE FORM, EVERY WEEK
     Route: 065
  30. VESICARE [Suspect]
     Active Substance: SOLIFENACIN SUCCINATE
     Indication: Urinary incontinence
     Dosage: 10 MILLIGRAM, ONCE A DAY, 10 MILLIGRAM, QD
     Route: 048

REACTIONS (8)
  - Blood pressure decreased [Unknown]
  - Epilepsy [Recovered/Resolved]
  - Confusional state [Recovered/Resolved]
  - Coma [Recovered/Resolved]
  - Somnolence [Recovered/Resolved]
  - Drug intolerance [Unknown]
  - Overdose [Recovered/Resolved]
  - Off label use [Unknown]

NARRATIVE: CASE EVENT DATE: 20180607
